FAERS Safety Report 5813832-X (Version None)
Quarter: 2008Q3

REPORT INFORMATION
  Report Type: 
  Country: None (occurrence: None)
  Receive Date: 20080717
  Receipt Date: 20080707
  Transmission Date: 20090109
  Serious: Yes (Hospitalization, Other)
  Sender: FDA-Public Use
  Company Number: US-BAXTER-2008BH007166

PATIENT
  Sex: Male

DRUGS (2)
  1. DIANEAL [Suspect]
     Indication: PERITONEAL DIALYSIS
     Dosage: DOSE UNIT:UNKNOWN
     Route: 033
     Dates: start: 20070701, end: 20080501
  2. DIANEAL [Suspect]
     Indication: PERITONEAL DIALYSIS
     Dosage: DOSE UNIT:UNKNOWN
     Route: 033
     Dates: start: 20070701, end: 20080501

REACTIONS (5)
  - BODY TEMPERATURE INCREASED [None]
  - CATHETER RELATED COMPLICATION [None]
  - GASTRIC ULCER PERFORATION [None]
  - PERITONITIS [None]
  - VOMITING [None]
